FAERS Safety Report 5062910-4 (Version None)
Quarter: 2006Q3

REPORT INFORMATION
  Report Type: 
  Country: None (occurrence: None)
  Receive Date: 20060724
  Receipt Date: 20060711
  Transmission Date: 20061208
  Serious: Yes (Other)
  Sender: FDA-Public Use
  Company Number: 2006086108

PATIENT
  Age: 75 Year
  Sex: Female

DRUGS (5)
  1. LIPITOR [Suspect]
     Indication: HYPERCHOLESTEROLAEMIA
     Dosage: 20 MG (20 MG, 1 IN 1 D), ORAL
     Route: 048
     Dates: start: 20050101, end: 20060611
  2. FOSAMAX [Concomitant]
  3. GLUCOSAMINE [Concomitant]
  4. CALTRATE (CALCIUM CARBONATE) [Concomitant]
  5. KARVEA (IRBESARTAN) [Concomitant]

REACTIONS (3)
  - BURNING SENSATION [None]
  - FEELING HOT [None]
  - NEUROPATHY PERIPHERAL [None]
